FAERS Safety Report 6750070-0 (Version None)
Quarter: 2010Q2

REPORT INFORMATION
  Report Type: 
  Country: None (occurrence: None)
  Receive Date: 20100601
  Receipt Date: 20100518
  Transmission Date: 20101027
  Serious: Yes (Other)
  Sender: FDA-Public Use
  Company Number: DE-PFIZER INC-2010062538

PATIENT
  Sex: Female

DRUGS (8)
  1. ZELDOX [Suspect]
     Indication: AFFECTIVE DISORDER
     Dosage: 40 MG, UNK
     Route: 048
     Dates: start: 20090701
  2. ZELDOX [Suspect]
     Indication: BIPOLAR I DISORDER
  3. SEROQUEL [Concomitant]
     Dosage: 25 MG, 1X/DAY
     Route: 048
  4. CIPRALEX [Concomitant]
     Dosage: 20 MG, 1X/DAY
     Route: 048
  5. LORAZEPAM [Concomitant]
     Dosage: 1 MG, 1X/DAY
  6. LEVOTHYROXINE SODIUM [Concomitant]
     Indication: HYPOTHYROIDISM
     Dosage: 0.225 MG, 1X/DAY
  7. DEXIBUPROFEN [Concomitant]
     Dosage: 400 MG, UNK
  8. LAMOTRIGINE [Concomitant]

REACTIONS (4)
  - BLOOD THYROID STIMULATING HORMONE INCREASED [None]
  - NEPHRITIS [None]
  - OEDEMA [None]
  - WEIGHT INCREASED [None]
